FAERS Safety Report 24776810 (Version 1)
Quarter: 2024Q4

REPORT INFORMATION
  Report Type: Spontaneous
  Country: US (occurrence: US)
  Receive Date: 20241226
  Receipt Date: 20241226
  Transmission Date: 20250114
  Serious: Yes (Other)
  Sender: SANDOZ
  Company Number: US-MLMSERVICE-20241211-PI292480-00101-1

PATIENT
  Sex: Female

DRUGS (11)
  1. CARBOPLATIN [Suspect]
     Active Substance: CARBOPLATIN
     Indication: Primitive neuroectodermal tumour
     Dosage: UNK
     Route: 065
  2. CYCLOPHOSPHAMIDE [Suspect]
     Active Substance: CYCLOPHOSPHAMIDE
     Indication: Primitive neuroectodermal tumour
     Dosage: UNK
     Route: 065
  3. CISPLATIN [Suspect]
     Active Substance: CISPLATIN
     Indication: Primitive neuroectodermal tumour
     Dosage: UNK
     Route: 065
  4. ETOPOSIDE [Suspect]
     Active Substance: ETOPOSIDE
     Indication: Primitive neuroectodermal tumour
     Dosage: UNK
     Route: 065
  5. ISOTRETINOIN [Suspect]
     Active Substance: ISOTRETINOIN
     Indication: Primitive neuroectodermal tumour
     Dosage: 80.000MG/M2 BID
     Route: 048
  6. METHOTREXATE [Suspect]
     Active Substance: METHOTREXATE
     Indication: Primitive neuroectodermal tumour
     Dosage: UNK
     Route: 065
  7. TOPOTECAN [Suspect]
     Active Substance: TOPOTECAN HYDROCHLORIDE
     Indication: Primitive neuroectodermal tumour
     Dosage: EVERY FOUR WEEKS (0.2MG PER DOSE { 1 YEAR OLD, 0.25MG PER DOSE WHEN ?1 YEAR OLD) FOR 12 DOSES
     Route: 037
  8. THIOTEPA [Suspect]
     Active Substance: THIOTEPA
     Indication: Primitive neuroectodermal tumour
     Dosage: UNK
     Route: 065
  9. THIOTEPA [Suspect]
     Active Substance: THIOTEPA
     Indication: Bone marrow conditioning regimen
  10. VINCRISTINE [Suspect]
     Active Substance: VINCRISTINE
     Indication: Primitive neuroectodermal tumour
     Dosage: UNK
     Route: 065
  11. VORINOSTAT [Suspect]
     Active Substance: VORINOSTAT
     Indication: Primitive neuroectodermal tumour
     Dosage: 100.000MG QD
     Route: 048

REACTIONS (7)
  - Respiratory arrest [Unknown]
  - Choking [Unknown]
  - Epistaxis [Unknown]
  - Pseudomonas infection [Unknown]
  - Mucosal inflammation [Unknown]
  - Febrile neutropenia [Unknown]
  - Sepsis [Unknown]
